FAERS Safety Report 7815559-1 (Version None)
Quarter: 2011Q4

REPORT INFORMATION
  Report Type: 
  Country: None (occurrence: None)
  Receive Date: 20111014
  Receipt Date: 20111007
  Transmission Date: 20120403
  Serious: Yes (Other)
  Sender: FDA-Public Use
  Company Number: FR-ABBOTT-11P-056-0848575-00

PATIENT
  Sex: Female
  Weight: 65 kg

DRUGS (6)
  1. SPASFON [Concomitant]
     Indication: CROHN'S DISEASE
     Dosage: ON REQUEST IF PAIN
     Route: 048
  2. HUMIRA [Suspect]
     Indication: CROHN'S DISEASE
     Dosage: INDUCTION DOSE WITH 160MG
     Dates: start: 20110816, end: 20110816
  3. XANAX [Concomitant]
     Indication: PRODUCT USED FOR UNKNOWN INDICATION
     Dosage: IF NEEDED
  4. PENTASA [Concomitant]
     Indication: CROHN'S DISEASE
     Dosage: 2 IN 1 DAY, 4 GRAM, 2 GIGABECQUERELS
     Dates: start: 20110601
  5. HUMIRA [Suspect]
  6. DIANE [Concomitant]
     Indication: ORAL CONTRACEPTION
     Dates: start: 20070101

REACTIONS (4)
  - EYELID OEDEMA [None]
  - EYELIDS PRURITUS [None]
  - PRURITUS [None]
  - LOCAL SWELLING [None]
